FAERS Safety Report 6916538-9 (Version None)
Quarter: 2010Q3

REPORT INFORMATION
  Report Type: 
  Country: None (occurrence: None)
  Receive Date: 20100810
  Receipt Date: 20100804
  Transmission Date: 20110219
  Serious: Yes (Other)
  Sender: FDA-Public Use
  Company Number: JP-BAYER-201013977BYL

PATIENT
  Age: 70 Year
  Sex: Female
  Weight: 55 kg

DRUGS (6)
  1. NEXAVAR [Suspect]
     Indication: HEPATIC NEOPLASM MALIGNANT
     Dosage: UNIT DOSE: 200 MG
     Route: 048
     Dates: start: 20090715, end: 20090720
  2. NEXAVAR [Suspect]
     Dosage: UNIT DOSE: 200 MG
     Route: 048
     Dates: start: 20090721, end: 20090727
  3. NEXAVAR [Suspect]
     Dosage: UNIT DOSE: 200 MG
     Route: 048
     Dates: start: 20090728
  4. PANTOSIN [Concomitant]
     Indication: CONSTIPATION
     Dosage: BEFORE NEXAVAR ADMINISTRATION
     Route: 048
  5. MAGNESIUM OXIDE [Concomitant]
     Indication: CONSTIPATION
     Dosage: BEFORE NEXAVAR ADMINISTRATION
     Route: 048
  6. LAGNOS [Concomitant]
     Route: 048
     Dates: start: 20100520

REACTIONS (3)
  - HEPATIC ENCEPHALOPATHY [None]
  - HYPERTENSION [None]
  - PLATELET COUNT DECREASED [None]
